FAERS Safety Report 19885999 (Version 17)
Quarter: 2024Q4

REPORT INFORMATION
  Report Type: Spontaneous
  Country: US (occurrence: US)
  Receive Date: 20210927
  Receipt Date: 20241031
  Transmission Date: 20250114
  Serious: Yes (Other)
  Sender: PFIZER
  Company Number: US-PFIZER INC-2021442753

PATIENT
  Age: 69 Year
  Sex: Male

DRUGS (6)
  1. TIKOSYN [Suspect]
     Active Substance: DOFETILIDE
     Indication: Atrial fibrillation
     Dosage: 325 MG
  2. TIKOSYN [Suspect]
     Active Substance: DOFETILIDE
     Dosage: 375 UG (TAKES ONE 125 MCG AND ONE 250 MCG), 2X/DAY
     Dates: start: 20210619
  3. TIKOSYN [Suspect]
     Active Substance: DOFETILIDE
     Dosage: 375 UG (TAKES ONE 125 MCG AND ONE 250 MCG), 2X/DAY
     Dates: start: 20210619
  4. TIKOSYN [Suspect]
     Active Substance: DOFETILIDE
     Dosage: 125 TWICE A DAY
  5. TIKOSYN [Suspect]
     Active Substance: DOFETILIDE
     Dosage: 125 ITS ONE TABLET BID
  6. TIKOSYN [Suspect]
     Active Substance: DOFETILIDE
     Dosage: 2 TAB BID TO EQUAL =250

REACTIONS (4)
  - Blindness unilateral [Unknown]
  - Ear disorder [Unknown]
  - Skin papilloma [Unknown]
  - Off label use [Unknown]
